FAERS Safety Report 7777075-5 (Version None)
Quarter: 2011Q3

REPORT INFORMATION
  Report Type: 
  Country: None (occurrence: None)
  Receive Date: 20110923
  Receipt Date: 20110923
  Transmission Date: 20111222
  Serious: Yes (Other)
  Sender: FDA-Public Use
  Company Number: None

PATIENT
  Sex: Female
  Weight: 60.3284 kg

DRUGS (2)
  1. LOPRESSOR [Suspect]
     Indication: HYPERTENSION
     Dosage: LOPRESSOR 100MG BID PO
     Route: 048
     Dates: start: 20090101, end: 20100101
  2. LOPRESSOR [Suspect]
     Indication: HYPERTENSIVE CARDIOMYOPATHY
     Dosage: LOPRESSOR 100MG BID PO
     Route: 048
     Dates: start: 20090101, end: 20100101

REACTIONS (4)
  - FATIGUE [None]
  - LETHARGY [None]
  - ASTHENIA [None]
  - ARRHYTHMIA [None]
